FAERS Safety Report 4528812-4 (Version None)
Quarter: 2004Q4

REPORT INFORMATION
  Report Type: 
  Country: None (occurrence: None)
  Receive Date: 20041216
  Receipt Date: 20041209
  Transmission Date: 20050328
  Serious: Yes (Death, Hospitalization)
  Sender: FDA-Public Use
  Company Number: CA-GLAXOSMITHKLINE-A0536962A

PATIENT
  Age: 63 Year
  Sex: Female

DRUGS (6)
  1. TOPOTECAN [Suspect]
     Indication: SQUAMOUS CELL CARCINOMA OF THE CERVIX
     Route: 042
  2. FRAGMIN [Concomitant]
     Indication: THROMBOSIS
     Route: 030
     Dates: start: 20041113, end: 20041209
  3. LACTULOSE [Concomitant]
     Indication: CONSTIPATION
     Route: 048
     Dates: start: 20041001, end: 20041208
  4. DILAUDID [Concomitant]
     Indication: ABDOMINAL PAIN LOWER
     Route: 048
     Dates: start: 20041119, end: 20041208
  5. LOSEC [Concomitant]
     Indication: DYSPEPSIA
     Route: 048
     Dates: start: 20041119, end: 20041208
  6. NORTRIPTYLINE HCL [Concomitant]
     Indication: ABDOMINAL PAIN LOWER
     Route: 048
     Dates: start: 20041126, end: 20041208

REACTIONS (14)
  - ANAEMIA [None]
  - CONSTIPATION [None]
  - DISEASE PROGRESSION [None]
  - DYSPNOEA [None]
  - GENERAL PHYSICAL HEALTH DETERIORATION [None]
  - HYPERTENSION [None]
  - LEUKOPENIA [None]
  - MALIGNANT NEOPLASM PROGRESSION [None]
  - NEUTROPENIC SEPSIS [None]
  - RESPIRATORY ARREST [None]
  - SEPSIS [None]
  - SINUS ARRHYTHMIA [None]
  - SQUAMOUS CELL CARCINOMA OF THE CERVIX [None]
  - THROMBOCYTOPENIA [None]
